FAERS Safety Report 9708952 (Version 1)
Quarter: 2013Q4

REPORT INFORMATION
  Report Type: Spontaneous
  Country: US (occurrence: US)
  Receive Date: 20131125
  Receipt Date: 20131125
  Transmission Date: 20140711
  Serious: Yes (Other)
  Sender: FDA-Public Use
  Company Number: US-ACTAVIS-2013-20961

PATIENT
  Age: 46 Year
  Sex: Female
  Weight: 66 kg

DRUGS (7)
  1. TAMOXIFEN CITRATE (WATSON LABORATORIES) [Suspect]
     Indication: BREAST CANCER
     Dosage: 20 MG, DAILY
     Route: 065
     Dates: start: 201205, end: 201306
  2. WELLBUTRIN [Concomitant]
     Indication: PRODUCT USED FOR UNKNOWN INDICATION
     Dosage: 200 MG, BID
     Route: 065
  3. AMBIEN [Concomitant]
     Indication: PRODUCT USED FOR UNKNOWN INDICATION
     Dosage: 10 MG, PRN
     Route: 065
  4. LORATAB [Concomitant]
     Indication: PRODUCT USED FOR UNKNOWN INDICATION
     Dosage: 5/500 MG
     Route: 065
  5. GABAPENTIN [Concomitant]
     Indication: PRODUCT USED FOR UNKNOWN INDICATION
     Dosage: 600 MG, BID
     Route: 065
  6. VITAMIN D                          /00107901/ [Concomitant]
     Indication: PRODUCT USED FOR UNKNOWN INDICATION
     Route: 065
  7. MULTIVITAMIN                       /00097801/ [Concomitant]
     Indication: PRODUCT USED FOR UNKNOWN INDICATION
     Route: 065

REACTIONS (13)
  - Endometrial stromal sarcoma [Unknown]
  - Memory impairment [Unknown]
  - Stress urinary incontinence [Unknown]
  - Dyspnoea [Unknown]
  - Arthralgia [Unknown]
  - Fatigue [Unknown]
  - Tinnitus [Unknown]
  - Anosmia [Unknown]
  - Vaginal haemorrhage [Recovered/Resolved]
  - Night sweats [Not Recovered/Not Resolved]
  - Hot flush [Not Recovered/Not Resolved]
  - Nausea [Not Recovered/Not Resolved]
  - Blindness [Not Recovered/Not Resolved]
